FAERS Safety Report 11058691 (Version 1)
Quarter: 2015Q2

REPORT INFORMATION
  Report Type: Spontaneous
  Country: US (occurrence: None)
  Receive Date: 20150422
  Receipt Date: 20150422
  Transmission Date: 20150821
  Serious: Yes (Other)
  Sender: FDA-Public Use
  Company Number: None

PATIENT
  Age: 56 Year
  Sex: Female
  Weight: 142.43 kg

DRUGS (11)
  1. SYNTHROID [Concomitant]
     Active Substance: LEVOTHYROXINE SODIUM
  2. PROBOTICS [Concomitant]
  3. Q10 [Concomitant]
  4. SIMVASTATIN. [Concomitant]
     Active Substance: SIMVASTATIN
  5. LEVEMIR [Concomitant]
     Active Substance: INSULIN DETEMIR
  6. LORSARTIN [Concomitant]
  7. VITAMIN D [Concomitant]
     Active Substance: CHOLECALCIFEROL
  8. MEDROXYPROGESTRINE [Concomitant]
  9. PRILASEC [Concomitant]
  10. JARDIANCE [Suspect]
     Active Substance: EMPAGLIFLOZIN
     Indication: BLOOD GLUCOSE INCREASED
     Dosage: 1 PILL ONCE DAILY --
     Dates: start: 20150401, end: 20150420
  11. ESTROGEL [Concomitant]
     Active Substance: ESTRADIOL

REACTIONS (4)
  - Skin lesion [None]
  - Fungal infection [None]
  - Dehydration [None]
  - Pollakiuria [None]

NARRATIVE: CASE EVENT DATE: 20150420
